FAERS Safety Report 4471350-8 (Version None)
Quarter: 2004Q4

REPORT INFORMATION
  Report Type: 
  Country: None (occurrence: None)
  Receive Date: 20041006
  Receipt Date: 20040922
  Transmission Date: 20050328
  Serious: Yes (Hospitalization)
  Sender: FDA-Public Use
  Company Number: 2004-BP-08530BP

PATIENT
  Age: 69 Year
  Sex: Male

DRUGS (5)
  1. AGGRENOX [Suspect]
     Indication: CEREBROVASCULAR ACCIDENT PROPHYLAXIS
     Dosage: 50 MG/400 MG (SEE TEXT, 25 MG/200 MG (1 PO BID)), PO
     Route: 048
  2. AGGRENOX [Suspect]
     Indication: PROPHYLAXIS
     Dosage: 50 MG/400 MG (SEE TEXT, 25 MG/200 MG (1 PO BID)), PO
     Route: 048
  3. AGGRENOX [Suspect]
     Indication: TRANSIENT ISCHAEMIC ATTACK
     Dosage: 50 MG/400 MG (SEE TEXT, 25 MG/200 MG (1 PO BID)), PO
     Route: 048
  4. ATENOLOL [Concomitant]
  5. LIPITOR [Concomitant]

REACTIONS (5)
  - BLOOD PRESSURE INCREASED [None]
  - DENTAL CARIES [None]
  - PROSTATECTOMY [None]
  - TOOTH INFECTION [None]
  - TOOTHACHE [None]
